FAERS Safety Report 25022518 (Version 1)
Quarter: 2025Q1

REPORT INFORMATION
  Report Type: Spontaneous
  Country: US (occurrence: US)
  Receive Date: 20250228
  Receipt Date: 20250228
  Transmission Date: 20250409
  Serious: Yes (Hospitalization, Other)
  Sender: TAKEDA
  Company Number: US-TAKEDA-2025TUS018328

PATIENT
  Age: 26 Year
  Sex: Female

DRUGS (3)
  1. ENTYVIO [Suspect]
     Active Substance: VEDOLIZUMAB
     Indication: Crohn^s disease
  2. ENTYVIO [Suspect]
     Active Substance: VEDOLIZUMAB
     Indication: Crohn^s disease
  3. ENTYVIO [Suspect]
     Active Substance: VEDOLIZUMAB

REACTIONS (8)
  - Crohn^s disease [Recovering/Resolving]
  - Procedural pain [Recovering/Resolving]
  - Abdominal discomfort [Recovering/Resolving]
  - Sensitive skin [Recovering/Resolving]
  - Injection site pain [Recovering/Resolving]
  - Anxiety [Recovering/Resolving]
  - Skin laceration [Recovering/Resolving]
  - Abdominal pain [Recovering/Resolving]
